FAERS Safety Report 8295166-X (Version None)
Quarter: 2012Q2

REPORT INFORMATION
  Report Type: 
  Country: None (occurrence: None)
  Receive Date: 20120418
  Receipt Date: 20120221
  Transmission Date: 20120825
  Serious: No
  Sender: FDA-Public Use
  Company Number: US-ASTRAZENECA-2012SE06964

PATIENT
  Age: 55 Year
  Sex: Female

DRUGS (3)
  1. NEXIUM [Suspect]
     Route: 048
  2. VIMOVO [Suspect]
     Route: 048
  3. VICODIN [Concomitant]

REACTIONS (4)
  - DYSPEPSIA [None]
  - DRUG DOSE OMISSION [None]
  - GASTROINTESTINAL INFLAMMATION [None]
  - GASTRITIS [None]
